FAERS Safety Report 8130346 (Version 4)
Quarter: 2012Q4

REPORT INFORMATION
  Report Type: 
  Country: US (occurrence: US)
  Receive Date: 20110912
  Receipt Date: 20121024
  Transmission Date: 20130627
  Serious: Yes (Hospitalization, Other)
  Sender: FDA-Public Use
  Company Number: US-BAYER-2011-081883

PATIENT
  Age: 29 Year
  Sex: Female

DRUGS (7)
  1. YASMIN [Suspect]
     Indication: POLYCYSTIC OVARY
     Dosage: UNK
     Dates: start: 2002, end: 2005
  2. YASMIN [Suspect]
     Indication: MENSES IRREGULAR
     Dosage: UNK
     Dates: start: 200810, end: 20090116
  3. YASMIN [Suspect]
     Indication: ACNE
  4. SINGULAIR [Concomitant]
     Dosage: UNK UNK, PRN
  5. ALBUTEROL [Concomitant]
     Dosage: UNK UNK, PRN
  6. ADVIL [Concomitant]
     Dosage: UNK UNK, PRN
  7. AVELOX [Concomitant]

REACTIONS (8)
  - Pulmonary embolism [None]
  - Cholelithiasis [None]
  - Injury [None]
  - Dyspnoea [None]
  - Pain [None]
  - Pulmonary infarction [None]
  - Deep vein thrombosis [None]
  - Pain in extremity [None]
